FAERS Safety Report 11717828 (Version 3)
Quarter: 2016Q2

REPORT INFORMATION
  Report Type: Spontaneous
  Country: JP (occurrence: JP)
  Receive Date: 20151110
  Receipt Date: 20160412
  Transmission Date: 20160815
  Serious: Yes (Death, Life-Threatening, Other)
  Sender: FDA-Public Use
  Company Number: JP-AMGEN-JPNSP2015118421

PATIENT
  Age: 73 Year
  Sex: Male

DRUGS (6)
  1. VECTIBIX [Suspect]
     Active Substance: PANITUMUMAB
     Indication: COLON CANCER
     Dosage: 9.0 MG/KG, Q2WEEKS
     Route: 041
     Dates: start: 20130220, end: 20130313
  2. DEXART [Concomitant]
     Active Substance: DEXAMETHASONE SODIUM PHOSPHATE
     Indication: PROPHYLAXIS OF NAUSEA AND VOMITING
     Dosage: 13.2 MG, Q3WEEKS
     Route: 042
     Dates: start: 20130220, end: 20130313
  3. IRINOTECAN HYDROCHLORIDE. [Suspect]
     Active Substance: IRINOTECAN HYDROCHLORIDE
     Indication: COLON CANCER
     Dosage: 230 MG, Q3WEEKS
     Route: 041
     Dates: start: 20130220, end: 20130313
  4. TS-1 [Suspect]
     Active Substance: GIMERACIL\OTERACIL\TEGAFUR
     Indication: COLON CANCER
     Dosage: 120 MG, UNK
     Route: 048
     Dates: start: 20130220, end: 20130327
  5. GRANISETRON                        /01178102/ [Concomitant]
     Active Substance: GRANISETRON
     Indication: PROPHYLAXIS OF NAUSEA AND VOMITING
     Dosage: 3 MG, Q3WEEKS
     Route: 042
     Dates: start: 20130220, end: 20130313
  6. ATROPINE SULFATE. [Concomitant]
     Active Substance: ATROPINE SULFATE
     Indication: PROPHYLAXIS
     Dosage: 0.25 MG, Q3WEEKS
     Route: 042
     Dates: start: 20130220, end: 20130313

REACTIONS (4)
  - Pneumonia aspiration [Fatal]
  - Vomiting [Unknown]
  - Neutrophil count decreased [Recovered/Resolved]
  - Febrile neutropenia [Unknown]

NARRATIVE: CASE EVENT DATE: 20130329
